FAERS Safety Report 8678433 (Version 2)
Quarter: 2012Q4

REPORT INFORMATION
  Report Type: Report from Study
  Country: SE (occurrence: SE)
  Receive Date: 20120723
  Receipt Date: 20120905
  Transmission Date: 20130627
  Serious: Yes (Hospitalization)
  Sender: FDA-Public Use
  Company Number: SE-ROCHE-1087177

PATIENT
  Age: 69 Year
  Sex: Male

DRUGS (5)
  1. XELODA [Suspect]
     Indication: GASTRIC CANCER
     Dosage: two times a day for 2 weeks 3 weeks and 5 weeks
     Route: 048
     Dates: start: 20111109, end: 20120113
  2. XELODA [Suspect]
     Route: 065
     Dates: start: 20120410, end: 20120421
  3. EPIRUBICIN [Suspect]
     Indication: GASTRIC CANCER
     Dosage: every 3 weeks
     Route: 042
     Dates: start: 20111109, end: 20111222
  4. OXALIPLATIN [Suspect]
     Indication: GASTRIC CANCER
     Dosage: every 3 weeks
     Route: 042
     Dates: start: 20111109, end: 20111222
  5. CISPLATIN [Suspect]
     Indication: GASTRIC CANCER
     Dosage: every week for 5 weeks
     Route: 042
     Dates: start: 20120410, end: 20120417

REACTIONS (3)
  - Abdominal pain upper [Recovered/Resolved]
  - Chromaturia [Recovered/Resolved]
  - Laboratory test abnormal [Recovering/Resolving]
